FAERS Safety Report 11697053 (Version 1)
Quarter: 2015Q4

REPORT INFORMATION
  Report Type: Spontaneous
  Country: US (occurrence: US)
  Receive Date: 20151104
  Receipt Date: 20151104
  Transmission Date: 20160304
  Serious: Yes (Hospitalization, Other)
  Sender: FDA-Public Use
  Company Number: US-PFIZER INC-2015368224

PATIENT
  Age: 36 Year
  Sex: Female

DRUGS (1)
  1. VERAPAMIL HCL [Suspect]
     Active Substance: VERAPAMIL HYDROCHLORIDE
     Dosage: 53 MG/KG, UNK
     Route: 048

REACTIONS (4)
  - Intentional overdose [Recovered/Resolved]
  - Suicide attempt [Recovered/Resolved]
  - Lethargy [Recovered/Resolved]
  - Hypotension [Recovered/Resolved]
